FAERS Safety Report 16660640 (Version 2)
Quarter: 2019Q3

REPORT INFORMATION
  Report Type: Spontaneous
  Country: US (occurrence: US)
  Receive Date: 20190802
  Receipt Date: 20190909
  Transmission Date: 20191004
  Serious: Yes (Other)
  Sender: FDA-Public Use
  Company Number: US-JNJFOC-20190735202

PATIENT
  Age: 85 Year
  Sex: Male
  Weight: 79 kg

DRUGS (18)
  1. REMICADE [Suspect]
     Active Substance: INFLIXIMAB
     Indication: COLITIS ULCERATIVE
     Route: 042
     Dates: start: 2013
  2. ASPRIN [Concomitant]
     Active Substance: ASPIRIN
  3. BIOTIN [Concomitant]
     Active Substance: BIOTIN
  4. CINNAMON                           /01647501/ [Concomitant]
     Active Substance: CINNAMON
  5. COREG [Concomitant]
     Active Substance: CARVEDILOL
  6. ACTOS [Concomitant]
     Active Substance: PIOGLITAZONE HYDROCHLORIDE
  7. FENOFIBRATE. [Concomitant]
     Active Substance: FENOFIBRATE
  8. AXIRON [Concomitant]
     Active Substance: TESTOSTERONE
  9. ASACOL [Concomitant]
     Active Substance: MESALAMINE
  10. MAGNESIUM HYDROXIDE. [Concomitant]
     Active Substance: MAGNESIUM HYDROXIDE
  11. POTASSIUM [Concomitant]
     Active Substance: POTASSIUM
  12. CRESTOR [Concomitant]
     Active Substance: ROSUVASTATIN CALCIUM
  13. HUMALOG [Concomitant]
     Active Substance: INSULIN LISPRO
  14. JANUVIA [Concomitant]
     Active Substance: SITAGLIPTIN PHOSPHATE
  15. PRILOSEC [Concomitant]
     Active Substance: OMEPRAZOLE MAGNESIUM
  16. CELEBREX [Concomitant]
     Active Substance: CELECOXIB
  17. COENZYME Q10 [Concomitant]
     Active Substance: UBIDECARENONE
  18. STARLIX [Concomitant]
     Active Substance: NATEGLINIDE

REACTIONS (1)
  - Infusion related reaction [Recovering/Resolving]

NARRATIVE: CASE EVENT DATE: 20190724
